FAERS Safety Report 11780332 (Version 1)
Quarter: 2015Q4

REPORT INFORMATION
  Report Type: Spontaneous
  Country: US (occurrence: US)
  Receive Date: 20151126
  Receipt Date: 20151126
  Transmission Date: 20160305
  Serious: No
  Sender: FDA-Public Use
  Company Number: US-JNJFOC-20151019488

PATIENT
  Age: 57 Year
  Sex: Female
  Weight: 58.51 kg

DRUGS (1)
  1. CHILDRENS TYLENOL [Suspect]
     Active Substance: ACETAMINOPHEN
     Indication: PAIN
     Dosage: 3 TSP, 1X QD PRN
     Route: 048

REACTIONS (1)
  - Wrong drug administered [Unknown]
